FAERS Safety Report 13267983 (Version 2)
Quarter: 2017Q1

REPORT INFORMATION
  Report Type: Spontaneous
  Country: US (occurrence: US)
  Receive Date: 20170224
  Receipt Date: 20170330
  Transmission Date: 20170428
  Serious: Yes (Death)
  Sender: FDA-Public Use
  Company Number: PHEH2017US005432

PATIENT
  Sex: Male
  Weight: 142 kg

DRUGS (2)
  1. VOTRIENT [Suspect]
     Active Substance: PAZOPANIB HYDROCHLORIDE
     Indication: SOFT TISSUE NEOPLASM
     Dosage: 600 MG, QD
     Route: 048
     Dates: start: 20160927, end: 20161220
  2. VOTRIENT [Suspect]
     Active Substance: PAZOPANIB HYDROCHLORIDE
     Indication: SYNOVIAL SARCOMA METASTATIC

REACTIONS (3)
  - Synovial sarcoma metastatic [Fatal]
  - Malignant neoplasm progression [Fatal]
  - Soft tissue neoplasm [Fatal]
